FAERS Safety Report 11163160 (Version 1)
Quarter: 2015Q2

REPORT INFORMATION
  Report Type: Spontaneous
  Country: US (occurrence: US)
  Receive Date: 20150604
  Receipt Date: 20150604
  Transmission Date: 20150821
  Serious: No
  Sender: FDA-Public Use
  Company Number: US-SA-2015SA042993

PATIENT
  Age: 75 Year
  Sex: Female

DRUGS (9)
  1. LANTUS SOLOSTAR [Suspect]
     Active Substance: INSULIN GLARGINE
     Indication: TYPE 2 DIABETES MELLITUS
     Dosage: DOSE: SLIDING SCALE 7, 6 AND 5 UNITS ?CHANGE IN TIMINGS MORNING AND NIGHTTIME
     Route: 065
     Dates: start: 201503
  2. SOLOSTAR [Concomitant]
     Active Substance: DEVICE
     Indication: TYPE 2 DIABETES MELLITUS
     Dosage: CHANGE IN TIMINGS MORNING AND NIGHTTIME
     Dates: start: 201503
  3. SOLOSTAR [Concomitant]
     Active Substance: DEVICE
     Indication: TYPE 2 DIABETES MELLITUS
     Dosage: CHANGE IN TIMINGS MORNING AND NIGHTTIME
     Dates: start: 201503
  4. LANTUS SOLOSTAR [Suspect]
     Active Substance: INSULIN GLARGINE
     Indication: TYPE 2 DIABETES MELLITUS
     Dosage: DOSE: SLIDING SCALE 7, 6 AND 5 UNITS ?CHANGE IN TIMINGS MORNING AND NIGHTTIME
     Route: 065
     Dates: start: 201503
  5. AMARYL [Concomitant]
     Active Substance: GLIMEPIRIDE
  6. LANTUS SOLOSTAR [Suspect]
     Active Substance: INSULIN GLARGINE
     Indication: TYPE 2 DIABETES MELLITUS
     Dosage: DOSE: SLIDING SCALE 7, 6 AND 5 UNITS ?CHANGE IN TIMINGS MORNING AND NIGHTTIME
     Route: 065
     Dates: start: 201503
  7. LANTUS SOLOSTAR [Suspect]
     Active Substance: INSULIN GLARGINE
     Indication: TYPE 2 DIABETES MELLITUS
     Dosage: DOSE:8 UNIT(S)
     Route: 065
     Dates: start: 201503
  8. SOLOSTAR [Concomitant]
     Active Substance: DEVICE
     Indication: TYPE 2 DIABETES MELLITUS
     Dates: start: 201503
  9. SOLOSTAR [Concomitant]
     Active Substance: DEVICE
     Indication: TYPE 2 DIABETES MELLITUS
     Dosage: CHANGE IN TIMINGS MORNING AND NIGHTTIME
     Dates: start: 201503

REACTIONS (5)
  - Drug ineffective [Unknown]
  - Blood glucose abnormal [Unknown]
  - Paraesthesia [Recovering/Resolving]
  - Blood glucose decreased [Recovered/Resolved]
  - Frustration [Unknown]

NARRATIVE: CASE EVENT DATE: 2015
